FAERS Safety Report 22542238 (Version 1)
Quarter: 2023Q2

REPORT INFORMATION
  Report Type: Spontaneous
  Country: US (occurrence: US)
  Receive Date: 20230609
  Receipt Date: 20230609
  Transmission Date: 20230721
  Serious: Yes (Life-Threatening)
  Sender: FDA-Public Use
  Company Number: US-LOREAL USA PRODUCTS, INC.-2023LOR00035

PATIENT
  Age: 9 Month
  Sex: Female

DRUGS (2)
  1. LA ROCHE POSAY ANTHELIOS SUNSCREEN SPF 60 ULTRA LIGHT [Suspect]
     Active Substance: AVOBENZONE\HOMOSALATE\OCTISALATE\OCTOCRYLENE\OXYBENZONE
     Dosage: UNK, APPLIED TO ARMS 2X/WEEK
     Route: 061
     Dates: start: 2023, end: 20230513
  2. UNSPECIFIED INGREDIENT [Suspect]
     Active Substance: UNSPECIFIED INGREDIENT
     Dosage: UNK, APPLIED TO FACE 2X/WEEK
     Route: 061
     Dates: start: 2023, end: 20230513

REACTIONS (7)
  - Erythema [Recovered/Resolved]
  - Ocular hyperaemia [Recovered/Resolved]
  - Cough [Recovered/Resolved]
  - Swelling face [Recovered/Resolved]
  - Swollen tongue [Recovered/Resolved]
  - Drooling [Recovered/Resolved]
  - Rhinorrhoea [Recovered/Resolved]

NARRATIVE: CASE EVENT DATE: 20230513
